FAERS Safety Report 24889369 (Version 1)
Quarter: 2025Q1

REPORT INFORMATION
  Report Type: Spontaneous
  Country: US (occurrence: US)
  Receive Date: 20250127
  Receipt Date: 20250127
  Transmission Date: 20250409
  Serious: No
  Sender: BAYER HEALTHCARE LLC
  Company Number: US-BAYER-2025A010139

PATIENT
  Sex: Female

DRUGS (1)
  1. MIRALAX [Suspect]
     Active Substance: POLYETHYLENE GLYCOL 3350
     Indication: Colonoscopy
     Dates: start: 20250106

REACTIONS (5)
  - Product use in unapproved indication [None]
  - Food allergy [None]
  - Arthropod bite [None]
  - Swelling face [None]
  - Multiple allergies [None]
